FAERS Safety Report 7318932-3 (Version None)
Quarter: 2011Q1

REPORT INFORMATION
  Report Type: 
  Country: None (occurrence: None)
  Receive Date: 20110228
  Receipt Date: 20110217
  Transmission Date: 20110831
  Serious: Yes (Other)
  Sender: FDA-Public Use
  Company Number: US-ELI_LILLY_AND_COMPANY-US201101003461

PATIENT
  Sex: Female

DRUGS (8)
  1. ANTIHYPERTENSIVES [Concomitant]
  2. HUMULIN N [Suspect]
     Dosage: 20 U, EACH EVENING
  3. HUMALOG [Concomitant]
     Dosage: UNK, AS NEEDED
  4. EYE DROPS [Concomitant]
  5. NOVOLOG [Concomitant]
     Dates: start: 20060101
  6. HUMULIN N [Suspect]
     Indication: TYPE 2 DIABETES MELLITUS
     Dosage: 35 U, EACH MORNING
  7. HUMULIN N [Suspect]
     Dosage: 35 U, EACH MORNING
  8. HUMULIN N [Suspect]
     Dosage: 20 U, EACH EVENING

REACTIONS (3)
  - INCORRECT DOSE ADMINISTERED [None]
  - BLINDNESS [None]
  - DIABETIC EYE DISEASE [None]
